FAERS Safety Report 18767834 (Version 5)
Quarter: 2021Q3

REPORT INFORMATION
  Report Type: Spontaneous
  Country: JP (occurrence: JP)
  Receive Date: 20210121
  Receipt Date: 20210726
  Transmission Date: 20211014
  Serious: Yes (Other)
  Sender: FDA-Public Use
  Company Number: JP-SUNOVION-2020DSP016535

PATIENT
  Age: 65 Year
  Sex: Female
  Weight: 78 kg

DRUGS (8)
  1. LATUDA [Suspect]
     Active Substance: LURASIDONE HYDROCHLORIDE
     Indication: BIPOLAR DISORDER
     Dosage: 20 MG, QD
     Route: 048
     Dates: start: 20201016, end: 20201029
  2. ARIPIPRAZOLE. [Concomitant]
     Active Substance: ARIPIPRAZOLE
     Indication: BIPOLAR DISORDER
     Dosage: 3 MG, BID
     Route: 048
  3. DEPAKENE?R [Concomitant]
     Active Substance: VALPROATE SODIUM
     Dosage: 600 MG, QD
     Route: 048
  4. BROTIZOLAM [Concomitant]
     Active Substance: BROTIZOLAM
     Indication: INSOMNIA
     Dosage: 0.25 MG, QD
     Route: 048
  5. FLUNITRAZEPAM [Concomitant]
     Active Substance: FLUNITRAZEPAM
     Indication: INSOMNIA
     Dosage: 3 MG, QD
     Route: 048
  6. DEPAKENE?R [Concomitant]
     Active Substance: VALPROATE SODIUM
     Indication: BIPOLAR DISORDER
     Dosage: 400 MG, QD
     Route: 048
  7. LATUDA [Suspect]
     Active Substance: LURASIDONE HYDROCHLORIDE
     Dosage: 40 MG, QD
     Route: 048
     Dates: start: 20201030, end: 20201210
  8. LATUDA [Suspect]
     Active Substance: LURASIDONE HYDROCHLORIDE
     Dosage: 20 MG, QD
     Route: 048
     Dates: start: 20201211, end: 20210114

REACTIONS (3)
  - Loss of consciousness [Recovered/Resolved]
  - Loss of consciousness [Recovered/Resolved]
  - Hepatic function abnormal [Recovered/Resolved]

NARRATIVE: CASE EVENT DATE: 20201215
